FAERS Safety Report 5093472-3 (Version None)
Quarter: 2006Q3

REPORT INFORMATION
  Report Type: 
  Country: None (occurrence: None)
  Receive Date: 20060829
  Receipt Date: 20060811
  Transmission Date: 20061208
  Serious: No
  Sender: FDA-Public Use
  Company Number: US200608000912

PATIENT
  Sex: Male

DRUGS (2)
  1. XIGRIS [Suspect]
     Dosage: INTRAVENOUS
     Route: 042
  2. HEPARIN SODIUM [Concomitant]

REACTIONS (1)
  - NO ADVERSE EFFECT [None]
